FAERS Safety Report 8708648 (Version 3)
Quarter: 2012Q4

REPORT INFORMATION
  Report Type: Report from Study
  Country: JP (occurrence: JP)
  Receive Date: 20120806
  Receipt Date: 20121211
  Transmission Date: 20130627
  Serious: Yes (Death, Life-Threatening, Hospitalization, Other)
  Sender: FDA-Public Use
  Company Number: JP-ASTELLAS-2012US006678

PATIENT
  Age: 61 Year
  Sex: Female
  Weight: 55 kg

DRUGS (22)
  1. ERLOTINIB TABLET [Suspect]
     Indication: ADENOCARCINOMA PANCREAS
     Dosage: 100 mg, UID/QD
     Route: 048
     Dates: start: 20120524, end: 20120603
  2. GEMCITABINE [Suspect]
     Indication: ADENOCARCINOMA PANCREAS
     Dosage: 1000 mg/m2, Weekly
     Route: 041
     Dates: start: 20120524, end: 20120524
  3. GEMCITABINE [Suspect]
     Dosage: 1000 mg/m2, UID/QD
     Route: 041
     Dates: start: 20120530, end: 20120530
  4. GEMCITABINE [Suspect]
     Dosage: 1500 mg/m2, Weekly
     Route: 041
     Dates: start: 20120704, end: 20120718
  5. LOXONIN [Suspect]
     Indication: PRODUCT USED FOR UNKNOWN INDICATION
     Dosage: 180 mg, UID/QD
     Route: 048
     Dates: end: 20120606
  6. TRAMADOL HYDROCHLORIDE [Suspect]
     Indication: PRODUCT USED FOR UNKNOWN INDICATION
     Dosage: 75 mg, UID/QD
     Route: 048
     Dates: start: 20120523, end: 20120608
  7. TRAMADOL HYDROCHLORIDE [Suspect]
     Dosage: 125 mg, UID/QD
     Route: 048
     Dates: start: 20120623, end: 20120625
  8. DECADRON                           /00016001/ [Suspect]
     Indication: PRODUCT USED FOR UNKNOWN INDICATION
     Dosage: 4 mg, UID/QD
     Route: 048
     Dates: start: 20120531, end: 20120602
  9. DECADRON                           /00016001/ [Suspect]
     Dosage: 8 mg, UID/QD
     Route: 048
     Dates: start: 20120604, end: 20120608
  10. DECADRON                           /00016001/ [Suspect]
     Dosage: 8 mg, UID/QD
     Route: 048
     Dates: start: 20120620, end: 2012
  11. PROTECADIN [Concomitant]
     Indication: PRODUCT USED FOR UNKNOWN INDICATION
     Dosage: 20 mg, UID/QD
     Route: 048
     Dates: start: 20120606
  12. PANCRELIPASE [Concomitant]
     Indication: PRODUCT USED FOR UNKNOWN INDICATION
     Dosage: 450 mg, UID/QD
     Route: 048
     Dates: start: 20120607
  13. MAGNESIUM OXIDE [Concomitant]
     Indication: PRODUCT USED FOR UNKNOWN INDICATION
     Dosage: 990 mg, UID/QD
     Route: 048
     Dates: end: 20120607
  14. URSO                               /00465701/ [Concomitant]
     Indication: PRODUCT USED FOR UNKNOWN INDICATION
     Dosage: 300 mg, UID/QD
     Route: 048
     Dates: end: 20120606
  15. BARACLUDE [Concomitant]
     Indication: VIRAL HEPATITIS CARRIER
     Dosage: 0.5 mg, UID/QD
     Route: 048
     Dates: start: 20120523, end: 2012
  16. BARACLUDE [Concomitant]
     Dosage: 0.5 mg, UID/QD
     Route: 048
     Dates: start: 20120524
  17. TAKEPRON [Concomitant]
     Indication: PRODUCT USED FOR UNKNOWN INDICATION
     Dosage: 30 mg, UID/QD
     Route: 048
     Dates: start: 20120606, end: 20120607
  18. TAKEPRON [Concomitant]
     Dosage: 30 mg, UID/QD
     Route: 048
     Dates: start: 20120620, end: 2012
  19. PURSENNID /00142207/ [Concomitant]
     Indication: PRODUCT USED FOR UNKNOWN INDICATION
     Dosage: 12 mg, UID/QD
     Route: 048
     Dates: start: 20120607, end: 20120607
  20. OXYCONTIN [Concomitant]
     Indication: PRODUCT USED FOR UNKNOWN INDICATION
     Dosage: 20 mg, UID/QD
     Route: 048
     Dates: start: 20120625
  21. PYRINAZIN [Concomitant]
     Indication: PRODUCT USED FOR UNKNOWN INDICATION
     Dosage: 1.5 g, UID/QD
     Route: 048
     Dates: start: 20120614
  22. BENZALIN                           /00036201/ [Concomitant]
     Indication: PRODUCT USED FOR UNKNOWN INDICATION
     Dosage: 5 mg, UID/QD
     Route: 048
     Dates: start: 20120623, end: 2012

REACTIONS (17)
  - Death [Fatal]
  - Cardiac arrest [Unknown]
  - Pleural effusion [Not Recovered/Not Resolved]
  - Pneumocystis jiroveci pneumonia [Not Recovered/Not Resolved]
  - Platelet count decreased [Unknown]
  - General physical health deterioration [Unknown]
  - Pneumonia [Not Recovered/Not Resolved]
  - Gastrointestinal haemorrhage [Recovered/Resolved]
  - Liver disorder [Not Recovered/Not Resolved]
  - Metastases to lymph nodes [Unknown]
  - Device related infection [Unknown]
  - Nausea [Recovering/Resolving]
  - Rash [Recovering/Resolving]
  - Diarrhoea [Recovering/Resolving]
  - Skin disorder [Recovering/Resolving]
  - Anaemia [Recovering/Resolving]
  - Device occlusion [Unknown]
